FAERS Safety Report 10830367 (Version 11)
Quarter: 2017Q1

REPORT INFORMATION
  Report Type: Spontaneous
  Country: FR (occurrence: FR)
  Receive Date: 20150219
  Receipt Date: 20170224
  Transmission Date: 20170428
  Serious: Yes (Death, Life-Threatening, Hospitalization, Other)
  Sender: FDA-Public Use
  Company Number: FR-SA-2015SA019322

PATIENT
  Age: 46 Year
  Sex: Female
  Weight: 85 kg

DRUGS (12)
  1. INEXIUM [Concomitant]
     Active Substance: ESOMEPRAZOLE
     Dosage: 40 MG/L
  2. AUBAGIO [Suspect]
     Active Substance: TERIFLUNOMIDE
     Indication: MULTIPLE SCLEROSIS RELAPSE
     Dosage: DOSAGE: 1/D?STRENGTH: 14 MG
     Route: 048
     Dates: start: 20150113, end: 20150212
  3. AUGMENTIN [Suspect]
     Active Substance: AMOXICILLIN\CLAVULANATE POTASSIUM
     Route: 048
     Dates: start: 20150211, end: 20150212
  4. CLAFORAN [Concomitant]
     Active Substance: CEFOTAXIME SODIUM
     Dates: start: 20150213, end: 20150213
  5. TAVANIC [Concomitant]
     Active Substance: LEVOFLOXACIN
     Dates: start: 20150213
  6. PARACETAMOL [Concomitant]
     Active Substance: ACETAMINOPHEN
     Route: 048
     Dates: start: 201502, end: 20150212
  7. ECONAZOLE [Concomitant]
     Active Substance: ECONAZOLE
     Dosage: VAGINAL CAPSULE AND CREAM
  8. FLAGYL [Concomitant]
     Active Substance: METRONIDAZOLE\METRONIDAZOLE HYDROCHLORIDE
     Dates: start: 20150213, end: 20150213
  9. SOLUPRED [Concomitant]
     Active Substance: PREDNISOLONE
  10. QUESTRAN [Concomitant]
     Active Substance: CHOLESTYRAMINE
  11. IBUPROFEN. [Concomitant]
     Active Substance: IBUPROFEN
  12. ATARAX [Concomitant]
     Active Substance: HYDROXYZINE HYDROCHLORIDE

REACTIONS (22)
  - Influenza like illness [Fatal]
  - Acute respiratory distress syndrome [Fatal]
  - Neutropenia [Fatal]
  - Pruritus [Fatal]
  - Rash erythematous [Fatal]
  - Rash maculo-papular [Fatal]
  - Mouth ulceration [Fatal]
  - Nasal mucosal ulcer [Fatal]
  - Blister [Fatal]
  - Vaginal inflammation [Fatal]
  - Odynophagia [Fatal]
  - Asthenia [Fatal]
  - Bronchoscopy abnormal [Fatal]
  - Toxic epidermal necrolysis [Fatal]
  - Shock [Fatal]
  - Pyrexia [Fatal]
  - Catarrh [Fatal]
  - Biopsy skin abnormal [Fatal]
  - Multiple organ dysfunction syndrome [Fatal]
  - Mucosal ulceration [Fatal]
  - Mucosal erosion [Fatal]
  - Erythema [Fatal]

NARRATIVE: CASE EVENT DATE: 201502
